FAERS Safety Report 5815702-X (Version None)
Quarter: 2008Q3

REPORT INFORMATION
  Report Type: 
  Country: None (occurrence: None)
  Receive Date: 20080717
  Receipt Date: 20080717
  Transmission Date: 20090109
  Serious: Yes (Life-Threatening, Hospitalization)
  Sender: FDA-Public Use
  Company Number: None

PATIENT
  Age: 67 Year
  Sex: Male
  Weight: 90.2658 kg

DRUGS (1)
  1. ANCEF [Suspect]
     Dosage: IV
     Route: 042
     Dates: start: 20080604

REACTIONS (8)
  - ACCIDENTAL EXPOSURE [None]
  - DRUG HYPERSENSITIVITY [None]
  - HYPOTENSION [None]
  - MEDICATION ERROR [None]
  - NO THERAPEUTIC RESPONSE [None]
  - OXYGEN SATURATION DECREASED [None]
  - WHEEZING [None]
  - WRONG DRUG ADMINISTERED [None]
